FAERS Safety Report 4837197-5 (Version None)
Quarter: 2005Q4

REPORT INFORMATION
  Report Type: 
  Country: None (occurrence: None)
  Receive Date: 20051122
  Receipt Date: 20051111
  Transmission Date: 20060501
  Serious: Yes (Hospitalization, Other)
  Sender: FDA-Public Use
  Company Number: KII-2005-0019595

PATIENT
  Age: 51 Year
  Sex: Female

DRUGS (5)
  1. OXYCODONE HCL [Suspect]
     Dosage: SEE TEXT ORAL
     Route: 048
  2. METHADONE HCL [Suspect]
     Dosage: SEE TEXT, ORAL
     Route: 048
  3. BENZODIAZEPINE DERIVATIVES [Suspect]
     Dosage: ORAL
     Route: 048
  4. ANTI-HISTAMINE TAB [Concomitant]
  5. SSRI [Concomitant]

REACTIONS (10)
  - AGITATION [None]
  - ASPARTATE AMINOTRANSFERASE INCREASED [None]
  - BODY TEMPERATURE INCREASED [None]
  - CYANOSIS [None]
  - LETHARGY [None]
  - MULTIPLE DRUG OVERDOSE INTENTIONAL [None]
  - OXYGEN SATURATION DECREASED [None]
  - SOMNOLENCE [None]
  - SUICIDE ATTEMPT [None]
  - URINARY TRACT INFECTION [None]
